FAERS Safety Report 21966068 (Version 2)
Quarter: 2023Q1

REPORT INFORMATION
  Report Type: Report from Study
  Country: US (occurrence: US)
  Receive Date: 20230208
  Receipt Date: 20230316
  Transmission Date: 20230418
  Serious: No
  Sender: FDA-Public Use
  Company Number: US-BRISTOL-MYERS SQUIBB COMPANY-2023-016825

PATIENT
  Age: 69 Year
  Sex: Female
  Weight: 63.05 kg

DRUGS (1)
  1. SOTYKTU [Suspect]
     Active Substance: DEUCRAVACITINIB
     Indication: Psoriasis
     Dosage: DOSE : INFORMATION UNAVAILABLE;     FREQ : 1 TABLET PER DAY
     Route: 048
     Dates: start: 20221202, end: 20230130

REACTIONS (8)
  - Muscle fatigue [Unknown]
  - Eye swelling [Unknown]
  - Dyspnoea [Unknown]
  - Yawning [Unknown]
  - Urinary tract infection [Not Recovered/Not Resolved]
  - Malaise [Unknown]
  - Fatigue [Recovering/Resolving]
  - Infection [Recovered/Resolved]

NARRATIVE: CASE EVENT DATE: 20230101
